FAERS Safety Report 11339751 (Version 1)
Quarter: 2015Q3

REPORT INFORMATION
  Report Type: Spontaneous
  Country: US (occurrence: US)
  Receive Date: 20150805
  Receipt Date: 20150805
  Transmission Date: 20151125
  Serious: Yes (Disabling)
  Sender: FDA-Public Use
  Company Number: US-ROCHE-1617820

PATIENT
  Age: 73 Year
  Sex: Female

DRUGS (1)
  1. XELODA [Suspect]
     Active Substance: CAPECITABINE
     Indication: BREAST CANCER
     Dosage: 2000MG QAM AND 1500 QPM, 14 DAYS ON, 7 DAYS OFF
     Route: 048
     Dates: start: 20150706, end: 20150727

REACTIONS (2)
  - Visual impairment [Unknown]
  - Diplopia [Unknown]

NARRATIVE: CASE EVENT DATE: 20150727
